FAERS Safety Report 4540095-8 (Version None)
Quarter: 2004Q4

REPORT INFORMATION
  Report Type: 
  Country: None (occurrence: None)
  Receive Date: 20041223
  Receipt Date: 20041210
  Transmission Date: 20050328
  Serious: Yes (Other)
  Sender: FDA-Public Use
  Company Number: 2004114919

PATIENT
  Age: 14 Year
  Sex: Male
  Weight: 43.8 kg

DRUGS (3)
  1. GENOTROPIN [Suspect]
     Indication: HYPOPITUITARISM
     Dosage: 0.3 MG (0.3 MG, DAILY), SUBCUTANEOUS
     Route: 058
  2. LEVOTHYROXINE SODIUM [Concomitant]
  3. HYDROCORTISONE ACETATE (HYDROCORTISONE ACETATE) [Concomitant]

REACTIONS (2)
  - ADRENAL INSUFFICIENCY [None]
  - PHARMACEUTICAL PRODUCT COMPLAINT [None]
